FAERS Safety Report 9774573 (Version 1)
Quarter: 2013Q4

REPORT INFORMATION
  Report Type: Spontaneous
  Country: US (occurrence: US)
  Receive Date: 20131220
  Receipt Date: 20131220
  Transmission Date: 20140711
  Serious: Yes (Death)
  Sender: FDA-Public Use
  Company Number: US-BAYER-2013-154070

PATIENT
  Age: 25 Year
  Sex: Female
  Weight: 104.31 kg

DRUGS (6)
  1. YAZ [Suspect]
  2. IBUPROFEN [Concomitant]
     Route: 048
  3. SILVER SULFADIAZINE [Concomitant]
     Dosage: 1 UNK, UNK
     Route: 061
     Dates: start: 20100707
  4. NAPROXEN [Concomitant]
     Dosage: 500 MG, UNK
     Route: 048
     Dates: start: 20100706
  5. CEPHALEXIN [Concomitant]
     Dosage: 500 MG, UNK
     Route: 048
     Dates: start: 20100628
  6. HYDROCODONE W/ACETAMINOPHEN [Concomitant]
     Dosage: 5-500
     Route: 048
     Dates: start: 20100621, end: 20100628

REACTIONS (2)
  - Deep vein thrombosis [Fatal]
  - Pulmonary embolism [Fatal]
